FAERS Safety Report 20837307 (Version 3)
Quarter: 2022Q3

REPORT INFORMATION
  Report Type: Other
  Country: US (occurrence: None)
  Receive Date: 20220517
  Receipt Date: 20220707
  Transmission Date: 20221027
  Serious: No
  Sender: FDA-Public Use
  Company Number: US-ROCHE-3092085

PATIENT
  Age: 54 Year
  Sex: Female
  Weight: 71.278 kg

DRUGS (3)
  1. OCREVUS [Suspect]
     Active Substance: OCRELIZUMAB
     Indication: Multiple sclerosis
     Dosage: 600 MG IV EVERY 6 MONTHS?RECENT LAST DOSE 18/NOV/2021?DOT: 18/NOV/2021, 18/MAY/2021, 12/NOV/2020, 12
     Route: 042
     Dates: start: 20191029
  2. COVID-19 VACCINE NOS [Suspect]
     Active Substance: COVID-19 VACCINE NOS
     Indication: Product used for unknown indication
     Route: 065
  3. COPAXONE [Concomitant]
     Active Substance: GLATIRAMER ACETATE

REACTIONS (9)
  - COVID-19 [Recovered/Resolved]
  - Feeling cold [Recovered/Resolved]
  - Blood urine present [Recovered/Resolved]
  - Fall [Unknown]
  - Chills [Unknown]
  - Headache [Unknown]
  - Urinary incontinence [Unknown]
  - Sinusitis [Recovered/Resolved]
  - Ear infection [Unknown]

NARRATIVE: CASE EVENT DATE: 20210301
